FAERS Safety Report 19118051 (Version 2)
Quarter: 2021Q2

REPORT INFORMATION
  Report Type: Spontaneous
  Country: US (occurrence: US)
  Receive Date: 20210409
  Receipt Date: 20210419
  Transmission Date: 20210717
  Serious: No
  Sender: FDA-Public Use
  Company Number: US-PFIZER INC-2021376296

PATIENT
  Age: 73 Year
  Sex: Male
  Weight: 72.56 kg

DRUGS (2)
  1. SUTENT [Suspect]
     Active Substance: SUNITINIB MALATE
     Indication: RENAL CANCER
     Dosage: 37.5 MG, CYCLIC (1 CAPSULE DAILY 21 DAYS)
     Route: 048
     Dates: start: 2007
  2. SUTENT [Suspect]
     Active Substance: SUNITINIB MALATE
     Dosage: 50 MG, CYCLIC (1 CAPSULE DAILY 21 DAYS)
     Route: 048
     Dates: start: 20210226

REACTIONS (3)
  - Thyroid disorder [Unknown]
  - Pruritus [Unknown]
  - Diarrhoea [Unknown]
